FAERS Safety Report 14925819 (Version 1)
Quarter: 2018Q2

REPORT INFORMATION
  Report Type: Report from Study
  Country: US (occurrence: US)
  Receive Date: 20180522
  Receipt Date: 20180522
  Transmission Date: 20180711
  Serious: Yes (Other)
  Sender: FDA-Public Use
  Company Number: US-ACTELION-A-NJ2018-172330

PATIENT
  Age: 72 Year
  Sex: Male

DRUGS (1)
  1. VALCHLOR [Suspect]
     Active Substance: MECHLORETHAMINE
     Indication: MYCOSIS FUNGOIDES
     Dosage: UNK
     Route: 061

REACTIONS (3)
  - Impaired healing [Not Recovered/Not Resolved]
  - Radiotherapy [Not Recovered/Not Resolved]
  - Skin exfoliation [Not Recovered/Not Resolved]
